FAERS Safety Report 9380365 (Version 1)
Quarter: 2013Q3

REPORT INFORMATION
  Report Type: Spontaneous
  Country: GB (occurrence: GB)
  Receive Date: 20130702
  Receipt Date: 20130702
  Transmission Date: 20140515
  Serious: Yes (Hospitalization, Other)
  Sender: FDA-Public Use
  Company Number: GB-TEVA-371700ISR

PATIENT
  Age: 62 Year
  Sex: Male

DRUGS (4)
  1. G-CSF [Suspect]
     Indication: ACUTE LEUKAEMIA
     Dosage: FLAG/IDA COURSE 2
     Route: 065
     Dates: start: 20111202
  2. FLUDARA [Suspect]
     Indication: ACUTE LEUKAEMIA
     Dosage: FLAG/IDA COURSE 2
     Route: 065
     Dates: start: 20111202
  3. CYTARABINE [Suspect]
     Indication: ACUTE LEUKAEMIA
     Dosage: FLAG/IDA COURSE 2
     Route: 065
     Dates: start: 20111202
  4. IDARUBICIN [Suspect]
     Indication: ACUTE LEUKAEMIA
     Dosage: FLAG/IDA COURSE 2
     Route: 065
     Dates: start: 20111202

REACTIONS (2)
  - Neutropenic sepsis [Recovered/Resolved]
  - Fungal infection [Recovered/Resolved]
